FAERS Safety Report 16697630 (Version 1)
Quarter: 2019Q3

REPORT INFORMATION
  Report Type: Spontaneous
  Country: AT (occurrence: AT)
  Receive Date: 20190813
  Receipt Date: 20190813
  Transmission Date: 20191004
  Serious: Yes (Hospitalization)
  Sender: FDA-Public Use
  Company Number: AT-BAUSCH-BL-2019-022588

PATIENT
  Sex: Female

DRUGS (3)
  1. EBETREXAT [Suspect]
     Active Substance: METHOTREXATE SODIUM
     Indication: PRODUCT USED FOR UNKNOWN INDICATION
     Route: 065
     Dates: start: 201108
  2. PREDNISOLONE. [Suspect]
     Active Substance: PREDNISOLONE
     Indication: RHEUMATOID ARTHRITIS
     Route: 065
     Dates: start: 201907
  3. OLUMIANT [Suspect]
     Active Substance: BARICITINIB
     Indication: RHEUMATOID ARTHRITIS
     Route: 048
     Dates: start: 201705

REACTIONS (2)
  - Syncope [Recovered/Resolved]
  - Fall [Recovered/Resolved]

NARRATIVE: CASE EVENT DATE: 20190317
